FAERS Safety Report 14598353 (Version 1)
Quarter: 2018Q1

REPORT INFORMATION
  Report Type: Spontaneous
  Country: US (occurrence: US)
  Receive Date: 20180303
  Receipt Date: 20180303
  Transmission Date: 20180509
  Serious: Yes (Other)
  Sender: FDA-Public Use
  Company Number: None

PATIENT
  Age: 24 Year
  Sex: Female
  Weight: 72.57 kg

DRUGS (1)
  1. NUVARING [Suspect]
     Active Substance: ETHINYL ESTRADIOL\ETONOGESTREL

REACTIONS (5)
  - Pain [None]
  - Presyncope [None]
  - Stress [None]
  - Vaginal discharge [None]
  - Muscle spasms [None]

NARRATIVE: CASE EVENT DATE: 20171011
